FAERS Safety Report 8442258-8 (Version None)
Quarter: 2012Q2

REPORT INFORMATION
  Report Type: 
  Country: None (occurrence: None)
  Receive Date: 20120615
  Receipt Date: 20120606
  Transmission Date: 20120825
  Serious: Yes (Other)
  Sender: FDA-Public Use
  Company Number: IT-ALLERGAN-1207333US

PATIENT
  Age: 60 Year
  Sex: Male

DRUGS (2)
  1. LUMIGAN [Suspect]
     Indication: OCULAR HYPERTENSION
  2. LUMIGAN [Suspect]
     Indication: GLAUCOMA
     Dosage: 1 GTT, QHS
     Dates: start: 20120427, end: 20120508

REACTIONS (2)
  - UVEITIS [None]
  - KERATITIS [None]
